FAERS Safety Report 12217622 (Version 1)
Quarter: 2016Q1

REPORT INFORMATION
  Report Type: Spontaneous
  Country: US (occurrence: US)
  Receive Date: 20160329
  Receipt Date: 20160329
  Transmission Date: 20160526
  Serious: No
  Sender: FDA-Public Use
  Company Number: US-HORIZON-DUE-0052-2016

PATIENT
  Age: 15 Year
  Sex: Female

DRUGS (1)
  1. DUEXIS [Suspect]
     Active Substance: FAMOTIDINE\IBUPROFEN
     Indication: DYSMENORRHOEA
     Dosage: TWICE DAILY
     Dates: start: 20160315

REACTIONS (1)
  - Off label use [Unknown]
